FAERS Safety Report 11696588 (Version 1)
Quarter: 2015Q4

REPORT INFORMATION
  Report Type: Spontaneous
  Country: FR (occurrence: FR)
  Receive Date: 20151104
  Receipt Date: 20151104
  Transmission Date: 20160304
  Serious: Yes (Hospitalization)
  Sender: FDA-Public Use
  Company Number: FR-CONCORDIA PHARMACEUTICALS INC.-CO-UX-FR-2015-046

PATIENT
  Age: 67 Year
  Sex: Male

DRUGS (6)
  1. TEMODAL [Suspect]
     Active Substance: TEMOZOLOMIDE
     Route: 048
     Dates: start: 20150806, end: 20150903
  2. MAGNESIUM [Suspect]
     Active Substance: MAGNESIUM
     Route: 048
     Dates: start: 201507, end: 20150924
  3. KALEORID [Suspect]
     Active Substance: POTASSIUM CHLORIDE
     Route: 048
     Dates: start: 201507, end: 20150924
  4. BACTRIM [Suspect]
     Active Substance: SULFAMETHOXAZOLE\TRIMETHOPRIM
     Route: 048
     Dates: start: 20150806, end: 20150909
  5. XATRAL [Suspect]
     Active Substance: ALFUZOSIN
     Route: 065
     Dates: end: 20150917
  6. MEDROL [Concomitant]
     Active Substance: METHYLPREDNISOLONE
     Dates: start: 201507

REACTIONS (3)
  - Pancytopenia [Recovering/Resolving]
  - Thrombocytopenia [Not Recovered/Not Resolved]
  - Bone marrow failure [Recovering/Resolving]

NARRATIVE: CASE EVENT DATE: 20150610
